FAERS Safety Report 15613962 (Version 3)
Quarter: 2019Q1

REPORT INFORMATION
  Report Type: Spontaneous
  Country: US (occurrence: US)
  Receive Date: 20181113
  Receipt Date: 20190325
  Transmission Date: 20190417
  Serious: No
  Sender: FDA-Public Use
  Company Number: US-PFIZER INC-2018465234

PATIENT
  Age: 68 Year
  Sex: Female
  Weight: 72.56 kg

DRUGS (2)
  1. LYRICA [Suspect]
     Active Substance: PREGABALIN
     Indication: NEURALGIA
     Dosage: 150 MG, 2X/DAY (EVERY 12 HOURS)
  2. HYDROCODONE [Concomitant]
     Active Substance: HYDROCODONE
     Indication: SPINAL CORD INJURY
     Dosage: 20 MG, 1X/DAY

REACTIONS (3)
  - Feeling abnormal [Unknown]
  - Withdrawal syndrome [Unknown]
  - Therapeutic response shortened [Unknown]
